FAERS Safety Report 16249198 (Version 2)
Quarter: 2019Q2

REPORT INFORMATION
  Report Type: Spontaneous
  Country: FR (occurrence: FR)
  Receive Date: 20190429
  Receipt Date: 20190522
  Transmission Date: 20190711
  Serious: Yes (Other)
  Sender: FDA-Public Use
  Company Number: FR-AUROBINDO-AUR-APL-2019-023893

PATIENT

DRUGS (3)
  1. CODEINE [Concomitant]
     Active Substance: CODEINE
     Indication: MIGRAINE
     Dosage: UNK
     Route: 065
  2. OXITRIPTAN [Concomitant]
     Active Substance: OXITRIPTAN
     Indication: MIGRAINE
     Dosage: UNK
     Route: 065
     Dates: start: 2012
  3. TRAMADOL. [Suspect]
     Active Substance: TRAMADOL
     Indication: MIGRAINE
     Dosage: UNK
     Route: 065

REACTIONS (2)
  - Loss of consciousness [Unknown]
  - Product use in unapproved indication [Unknown]
